FAERS Safety Report 9999563 (Version 2)
Quarter: 2015Q2

REPORT INFORMATION
  Report Type: Report from Study
  Country: US (occurrence: US)
  Receive Date: 20140312
  Receipt Date: 20150622
  Transmission Date: 20150821
  Serious: Yes (Other)
  Sender: FDA-Public Use
  Company Number: US-SA-2014SA030051

PATIENT
  Age: 78 Year
  Sex: Female

DRUGS (2)
  1. CLOFARABINE [Suspect]
     Active Substance: CLOFARABINE
     Indication: MYELODYSPLASTIC SYNDROME
     Dosage: 28 DAY CYCLE
     Route: 048
  2. FILGRASTIM [Concomitant]
     Active Substance: FILGRASTIM
     Dosage: DOSE: 4 DOSES

REACTIONS (4)
  - Pancytopenia [Recovered/Resolved]
  - Off label use [Unknown]
  - Bone marrow failure [Unknown]
  - Febrile neutropenia [Unknown]
